FAERS Safety Report 19475960 (Version 1)
Quarter: 2021Q2

REPORT INFORMATION
  Report Type: Spontaneous
  Country: IT (occurrence: IT)
  Receive Date: 20210630
  Receipt Date: 20210630
  Transmission Date: 20210717
  Serious: Yes (Hospitalization)
  Sender: FDA-Public Use
  Company Number: IT-TEVA-2021-IT-1928658

PATIENT
  Age: 76 Year
  Sex: Male

DRUGS (4)
  1. IBUPROFEN. [Suspect]
     Active Substance: IBUPROFEN
     Indication: TOOTHACHE
     Dosage: THRICE DAILY
     Route: 048
  2. AMOXICILLIN. [Suspect]
     Active Substance: AMOXICILLIN
     Indication: GINGIVITIS
     Dosage: THRICE DAILY
     Route: 048
  3. AMOXICILLIN. [Suspect]
     Active Substance: AMOXICILLIN
     Indication: GINGIVITIS
     Dosage: 1000 MILLIGRAM DAILY; DOSE WAS THEN INCREASED DUE TO NOTICEABLE ORAL INFLAMMATION
     Route: 048
  4. CLAVULANIC ACID [Concomitant]
     Active Substance: CLAVULANIC ACID
     Indication: GINGIVITIS
     Route: 065

REACTIONS (1)
  - Encephalitis [Recovered/Resolved]
